FAERS Safety Report 5697891-3 (Version None)
Quarter: 2008Q2

REPORT INFORMATION
  Report Type: 
  Country: None (occurrence: None)
  Receive Date: 20080408
  Receipt Date: 20080401
  Transmission Date: 20081010
  Serious: Yes (Death, Hospitalization)
  Sender: FDA-Public Use
  Company Number: GR-AVENTIS-200811405GDDC

PATIENT
  Age: 35 Year
  Sex: Female

DRUGS (4)
  1. TELITHROMYCIN [Suspect]
     Dosage: DOSE: UNK
  2. MOVATEC [Concomitant]
  3. FORADIL [Concomitant]
     Route: 055
  4. COUGH AND COLD PREPARATIONS [Concomitant]

REACTIONS (2)
  - BRAIN OEDEMA [None]
  - BRONCHOPNEUMONIA [None]
